FAERS Safety Report 23357946 (Version 1)
Quarter: 2023Q4

REPORT INFORMATION
  Report Type: Spontaneous
  Country: US (occurrence: None)
  Receive Date: 20231229
  Receipt Date: 20231229
  Transmission Date: 20240110
  Serious: No
  Sender: FDA-Public Use
  Company Number: None

PATIENT

DRUGS (1)
  1. MOBIC [Suspect]
     Active Substance: MELOXICAM

REACTIONS (39)
  - Product prescribing error [None]
  - Therapy change [None]
  - Product use issue [None]
  - Overdose [None]
  - Body temperature decreased [None]
  - Cough [None]
  - Chromaturia [None]
  - Urine output decreased [None]
  - Thirst [None]
  - Dehydration [None]
  - Therapy interrupted [None]
  - Neuralgia [None]
  - Dysuria [None]
  - Hyperhidrosis [None]
  - Panic attack [None]
  - Aphasia [None]
  - Cognitive disorder [None]
  - Dysphemia [None]
  - Abnormal dreams [None]
  - Anxiety [None]
  - Nervousness [None]
  - Product after taste [None]
  - Burning sensation [None]
  - Paraesthesia [None]
  - Paraesthesia [None]
  - Memory impairment [None]
  - Confusional state [None]
  - Somnolence [None]
  - Loss of personal independence in daily activities [None]
  - Presyncope [None]
  - Tinnitus [None]
  - Tinnitus [None]
  - Insomnia [None]
  - Mood altered [None]
  - Irritability [None]
  - Rhinitis [None]
  - Nightmare [None]
  - Alanine aminotransferase increased [None]
  - Aspartate aminotransferase increased [None]

NARRATIVE: CASE EVENT DATE: 20231018
